FAERS Safety Report 13745522 (Version 1)
Quarter: 2017Q3

REPORT INFORMATION
  Report Type: Spontaneous
  Country: US (occurrence: US)
  Receive Date: 20170711
  Receipt Date: 20170711
  Transmission Date: 20171127
  Serious: No
  Sender: FDA-Public Use
  Company Number: None

PATIENT
  Age: 67 Year
  Sex: Female

DRUGS (1)
  1. STELARA [Suspect]
     Active Substance: USTEKINUMAB
     Indication: ILL-DEFINED DISORDER
     Dosage: 45MG 4 WEEKS FOR 2 DOSES THEN EVERY 3 MOS SUBQ
     Route: 058
     Dates: start: 20170607, end: 20170610

REACTIONS (3)
  - Throat irritation [None]
  - Cough [None]
  - Rhinorrhoea [None]

NARRATIVE: CASE EVENT DATE: 20170607
